FAERS Safety Report 5860281-4 (Version None)
Quarter: 2008Q3

REPORT INFORMATION
  Report Type: 
  Country: None (occurrence: None)
  Receive Date: 20080827
  Receipt Date: 20070822
  Transmission Date: 20090109
  Serious: No
  Sender: FDA-Public Use
  Company Number: US-ABBOTT-07P-163-0378474-00

PATIENT
  Sex: Female
  Weight: 52.21 kg

DRUGS (4)
  1. NIASPAN [Suspect]
     Indication: BLOOD CHOLESTEROL INCREASED
     Route: 048
     Dates: start: 20070819, end: 20070821
  2. ACETYLSALICYLIC ACID SRT [Concomitant]
     Indication: DRUG USE FOR UNKNOWN INDICATION
     Route: 048
  3. CALCIUM CARBONATE [Concomitant]
     Indication: DRUG USE FOR UNKNOWN INDICATION
     Route: 048
  4. METOPROLOL SUCCINATE [Concomitant]
     Indication: HYPERTENSION
     Dosage: 1/2 TABLET
     Route: 048

REACTIONS (4)
  - DISCOMFORT [None]
  - LIMB DISCOMFORT [None]
  - MUSCULOSKELETAL DISCOMFORT [None]
  - SENSATION OF PRESSURE [None]
